FAERS Safety Report 5084137-2 (Version None)
Quarter: 2006Q3

REPORT INFORMATION
  Report Type: 
  Country: None (occurrence: None)
  Receive Date: 20060816
  Receipt Date: 20060806
  Transmission Date: 20061208
  Serious: Yes (Other)
  Sender: FDA-Public Use
  Company Number: 2006096315

PATIENT
  Age: 25 Year
  Sex: Male
  Weight: 72.5755 kg

DRUGS (1)
  1. DRAMAMINE [Suspect]
     Indication: MOTION SICKNESS
     Dosage: 1 TABLET ONE TIME, ORAL
     Route: 048
     Dates: start: 20060805, end: 20060805

REACTIONS (2)
  - DISCOMFORT [None]
  - RECTAL HAEMORRHAGE [None]
